FAERS Safety Report 23924929 (Version 2)
Quarter: 2024Q2

REPORT INFORMATION
  Report Type: Spontaneous
  Country: CA (occurrence: CA)
  Receive Date: 20240531
  Receipt Date: 20240607
  Transmission Date: 20240716
  Serious: Yes (Other)
  Sender: FDA-Public Use
  Company Number: CA-GLAXOSMITHKLINE-CA2024065049

PATIENT

DRUGS (1)
  1. FLOLAN [Suspect]
     Active Substance: EPOPROSTENOL SODIUM
     Indication: Raynaud^s phenomenon
     Dosage: UNK
     Route: 051

REACTIONS (4)
  - Injection site thrombosis [Unknown]
  - Injection site extravasation [Unknown]
  - Complication associated with device [Unknown]
  - Off label use [Unknown]
